FAERS Safety Report 8065746-5 (Version None)
Quarter: 2012Q1

REPORT INFORMATION
  Report Type: 
  Country: None (occurrence: None)
  Receive Date: 20120124
  Receipt Date: 20120119
  Transmission Date: 20120608
  Serious: Yes (Other)
  Sender: FDA-Public Use
  Company Number: JP-PFIZER INC-2012014778

PATIENT
  Sex: Female

DRUGS (1)
  1. HALCION [Suspect]
     Dosage: UNK
     Route: 048

REACTIONS (1)
  - EPILEPSY [None]
